FAERS Safety Report 12888484 (Version 1)
Quarter: 2016Q4

REPORT INFORMATION
  Report Type: Spontaneous
  Country: DE (occurrence: DE)
  Receive Date: 20161027
  Receipt Date: 20161027
  Transmission Date: 20170207
  Serious: Yes (Hospitalization)
  Sender: FDA-Public Use
  Company Number: DE-ELI_LILLY_AND_COMPANY-DE201610005539

PATIENT
  Age: 78 Year
  Sex: Female

DRUGS (2)
  1. METOPROLOL. [Concomitant]
     Active Substance: METOPROLOL
  2. TERIPARATIDE [Suspect]
     Active Substance: TERIPARATIDE
     Indication: OSTEOPOROSIS
     Dosage: UNK, UNKNOWN
     Route: 058
     Dates: start: 201510

REACTIONS (3)
  - Catheter site inflammation [Not Recovered/Not Resolved]
  - Gastritis [Unknown]
  - Malaise [Unknown]
